FAERS Safety Report 5378358-9 (Version None)
Quarter: 2007Q3

REPORT INFORMATION
  Report Type: 
  Country: None (occurrence: None)
  Receive Date: 20070702
  Receipt Date: 20070702
  Transmission Date: 20080115
  Serious: Yes (Hospitalization)
  Sender: FDA-Public Use
  Company Number: None

PATIENT
  Sex: Male
  Weight: 87.3 kg

DRUGS (1)
  1. ELSPAR [Suspect]
     Dosage: 90120 MG

REACTIONS (6)
  - ACUTE HEPATIC FAILURE [None]
  - DEHYDRATION [None]
  - ELECTROLYTE IMBALANCE [None]
  - HEPATIC ENCEPHALOPATHY [None]
  - MENTAL STATUS CHANGES [None]
  - WEIGHT DECREASED [None]
